FAERS Safety Report 24179069 (Version 1)
Quarter: 2024Q3

REPORT INFORMATION
  Report Type: Spontaneous
  Country: FR (occurrence: FR)
  Receive Date: 20240806
  Receipt Date: 20240806
  Transmission Date: 20241017
  Serious: Yes (Other)
  Sender: NORDIC PHARMA
  Company Number: None

PATIENT
  Age: 78 Year
  Sex: Male

DRUGS (13)
  1. METHOTREXATE [Suspect]
     Active Substance: METHOTREXATE
     Indication: Psoriasis
     Route: 058
     Dates: start: 20221206
  2. METHOTREXATE [Suspect]
     Active Substance: METHOTREXATE
     Indication: Psoriasis
     Route: 058
     Dates: start: 20151105, end: 20171016
  3. KIOVIG [Concomitant]
     Active Substance: HUMAN IMMUNOGLOBULIN G
  4. FOLIC ACID [Concomitant]
     Active Substance: FOLIC ACID
     Indication: Product used for unknown indication
     Route: 048
     Dates: start: 20141113, end: 20221206
  5. FOLIC ACID [Concomitant]
     Active Substance: FOLIC ACID
     Indication: Product used for unknown indication
     Route: 048
     Dates: start: 20221206
  6. METFORMIN HYDROCHLORIDE [Concomitant]
     Active Substance: METFORMIN HYDROCHLORIDE
  7. ZYCLARA [Concomitant]
     Active Substance: IMIQUIMOD
  8. ASPIRIN [Concomitant]
     Active Substance: ASPIRIN
  9. DEXERYL [Concomitant]
  10. ZOXAN [Concomitant]
  11. METHOTREXATE [Concomitant]
     Active Substance: METHOTREXATE
     Indication: Psoriasis
     Route: 048
     Dates: start: 20141113, end: 20151105
  12. METHOTREXATE [Concomitant]
     Active Substance: METHOTREXATE
     Indication: Psoriasis
     Route: 048
     Dates: start: 20171016, end: 20221206
  13. AMLODIPINE BESYLATE [Concomitant]
     Active Substance: AMLODIPINE BESYLATE

REACTIONS (2)
  - Pancytopenia [Recovered/Resolved]
  - Angina pectoris [Recovered/Resolved]

NARRATIVE: CASE EVENT DATE: 20230831
